FAERS Safety Report 5574752-1 (Version None)
Quarter: 2007Q4

REPORT INFORMATION
  Report Type: 
  Country: None (occurrence: None)
  Receive Date: 20071226
  Receipt Date: 20071226
  Transmission Date: 20080405
  Serious: Yes (Other)
  Sender: FDA-Public Use
  Company Number: None

PATIENT
  Sex: Male
  Weight: 101.2 kg

DRUGS (8)
  1. INTERLEUKIN (IL-6) [Suspect]
     Indication: MULTIPLE MYELOMA
     Dosage: 240 MCG SUB-Q QD
     Route: 058
     Dates: start: 20071214
  2. INTERLEUKIN (IL-6) [Suspect]
     Indication: MULTIPLE MYELOMA
     Dosage: 240 MCG SUB-Q QD
     Route: 058
     Dates: start: 20071215
  3. INTERLEUKIN (IL-6) [Suspect]
     Indication: MULTIPLE MYELOMA
     Dosage: 240 MCG SUB-Q QD
     Route: 058
     Dates: start: 20071216
  4. INTRON A [Concomitant]
  5. TYLENOL [Concomitant]
  6. ATIVAN [Concomitant]
  7. COMPAZINE [Concomitant]
  8. LEXAPRO [Concomitant]

REACTIONS (7)
  - ANOREXIA [None]
  - CONFUSIONAL STATE [None]
  - DISTURBANCE IN ATTENTION [None]
  - FATIGUE [None]
  - HYPERHIDROSIS [None]
  - INFLUENZA [None]
  - NAUSEA [None]
